FAERS Safety Report 12211521 (Version 1)
Quarter: 2016Q1

REPORT INFORMATION
  Report Type: Spontaneous
  Country: US (occurrence: US)
  Receive Date: 20160325
  Receipt Date: 20160325
  Transmission Date: 20160526
  Serious: No
  Sender: FDA-Public Use
  Company Number: US-TEVA-645088USA

PATIENT
  Sex: Female
  Weight: 54.48 kg

DRUGS (1)
  1. AZILECT [Suspect]
     Active Substance: RASAGILINE MESYLATE
     Indication: PARKINSON^S DISEASE
     Dates: start: 2014

REACTIONS (3)
  - Feeling abnormal [Unknown]
  - Tremor [Unknown]
  - Hypokinesia [Unknown]

NARRATIVE: CASE EVENT DATE: 2015
